FAERS Safety Report 9411972 (Version 1)
Quarter: 2013Q3

REPORT INFORMATION
  Report Type: Spontaneous
  Country: US (occurrence: None)
  Receive Date: 20130719
  Receipt Date: 20130719
  Transmission Date: 20140515
  Serious: Yes (Hospitalization)
  Sender: FDA-Public Use
  Company Number: None

PATIENT
  Sex: Male
  Weight: 81.7 kg

DRUGS (2)
  1. VANCOMYCIN [Suspect]
     Route: 042
     Dates: start: 20130606, end: 20130112
  2. FUROSEMIDE [Suspect]
     Route: 042
     Dates: start: 20130105, end: 20130108

REACTIONS (1)
  - Renal impairment [None]
